FAERS Safety Report 20581200 (Version 1)
Quarter: 2022Q1

REPORT INFORMATION
  Report Type: Spontaneous
  Country: US (occurrence: US)
  Receive Date: 20220311
  Receipt Date: 20220311
  Transmission Date: 20220423
  Serious: Yes (Death, Other)
  Sender: FDA-Public Use
  Company Number: US-SA-SAC20220309001075

PATIENT
  Sex: Female

DRUGS (13)
  1. LUMIZYME [Suspect]
     Active Substance: ALGLUCOSIDASE ALFA
     Indication: Glycogen storage disorder
     Dosage: 1800 MG, QOW
     Route: 042
     Dates: start: 20140415
  2. DILTIAZEM [Concomitant]
     Active Substance: DILTIAZEM
  3. ZINC [Concomitant]
     Active Substance: ZINC
  4. DIPHENHYDRAMINE [Concomitant]
     Active Substance: DIPHENHYDRAMINE
  5. HEPARIN [Concomitant]
     Active Substance: HEPARIN SODIUM
  6. SODIUM CHLORIDE [Concomitant]
     Active Substance: SODIUM CHLORIDE
  7. STERILE WATER [Concomitant]
     Active Substance: WATER
  8. EPINEPHRINE [Concomitant]
     Active Substance: EPINEPHRINE
  9. PAROXETINE [Concomitant]
     Active Substance: PAROXETINE
  10. ALBUTEROL [Concomitant]
     Active Substance: ALBUTEROL
  11. LISINOPRIL [Concomitant]
     Active Substance: LISINOPRIL
  12. HYDROCHLOROTHIAZIDE [Concomitant]
     Active Substance: HYDROCHLOROTHIAZIDE
  13. ONE-A-DAY [CETIRIZINE HYDROCHLORIDE] [Concomitant]

REACTIONS (1)
  - Death [Fatal]
